FAERS Safety Report 7903822-5 (Version None)
Quarter: 2011Q4

REPORT INFORMATION
  Report Type: 
  Country: None (occurrence: None)
  Receive Date: 20111109
  Receipt Date: 20111101
  Transmission Date: 20120403
  Serious: Yes (Other)
  Sender: FDA-Public Use
  Company Number: SG-JNJFOC-20111101684

PATIENT
  Age: 70 Year
  Sex: Male

DRUGS (33)
  1. DOXORUBICIN HCL [Suspect]
     Route: 042
  2. DOXORUBICIN HCL [Suspect]
     Route: 042
  3. RITUXIMAB [Suspect]
     Dosage: MAINTENANCE
     Route: 065
  4. CYCLOPHOSPHAMIDE [Suspect]
     Route: 065
  5. CYCLOPHOSPHAMIDE [Suspect]
     Route: 065
  6. PREDNISONE [Suspect]
     Route: 065
  7. DOXORUBICIN HCL [Suspect]
     Route: 042
  8. RITUXIMAB [Suspect]
     Route: 065
  9. CYCLOPHOSPHAMIDE [Suspect]
     Route: 065
  10. VINCRISTINE [Suspect]
     Route: 065
  11. PREDNISONE [Suspect]
     Indication: MANTLE CELL LYMPHOMA STAGE III
     Route: 065
  12. PREDNISONE [Suspect]
     Route: 065
  13. DOXORUBICIN HCL [Suspect]
     Indication: MANTLE CELL LYMPHOMA STAGE III
     Route: 042
  14. VINCRISTINE [Suspect]
     Route: 065
  15. PREDNISONE [Suspect]
     Route: 065
  16. RITUXIMAB [Suspect]
     Route: 065
  17. CYCLOPHOSPHAMIDE [Suspect]
     Route: 065
  18. VINCRISTINE [Suspect]
     Indication: MANTLE CELL LYMPHOMA STAGE III
     Route: 065
  19. DOXORUBICIN HCL [Suspect]
     Route: 042
  20. DOXORUBICIN HCL [Suspect]
     Route: 042
  21. RITUXIMAB [Suspect]
     Dosage: MAINTENANCE
     Route: 065
  22. CYCLOPHOSPHAMIDE [Suspect]
     Indication: MANTLE CELL LYMPHOMA STAGE III
     Route: 065
  23. VINCRISTINE [Suspect]
     Route: 065
  24. VINCRISTINE [Suspect]
     Route: 065
  25. RITUXIMAB [Suspect]
     Indication: MANTLE CELL LYMPHOMA STAGE III
     Dosage: MAINTENANCE
     Route: 065
  26. RITUXIMAB [Suspect]
     Route: 065
  27. RITUXIMAB [Suspect]
     Route: 065
  28. RITUXIMAB [Suspect]
     Route: 065
  29. RITUXIMAB [Suspect]
     Route: 065
  30. CYCLOPHOSPHAMIDE [Suspect]
     Route: 065
  31. PREDNISONE [Suspect]
     Route: 065
  32. VINCRISTINE [Suspect]
     Route: 065
  33. PREDNISONE [Suspect]
     Route: 065

REACTIONS (1)
  - HEPATITIS B [None]
